FAERS Safety Report 5100584-4 (Version None)
Quarter: 2006Q3

REPORT INFORMATION
  Report Type: 
  Country: None (occurrence: None)
  Receive Date: 20060907
  Receipt Date: 20060907
  Transmission Date: 20061208
  Serious: Yes (Other)
  Sender: FDA-Public Use
  Company Number: None

PATIENT
  Sex: Male
  Weight: 106 kg

DRUGS (9)
  1. LEVITRA [Suspect]
     Indication: ERECTILE DYSFUNCTION
     Dosage: 20 MG PRN PO
     Route: 048
  2. WELLBUTRIN [Concomitant]
  3. LIPITOR [Concomitant]
  4. TARKA [Concomitant]
  5. HYZAAR [Concomitant]
  6. SPIRONOLACTONE [Concomitant]
  7. IBUPROFEN [Concomitant]
  8. CITRACAL [Concomitant]
  9. TESTOSTERONE [Concomitant]

REACTIONS (5)
  - DIZZINESS [None]
  - FLUSHING [None]
  - UNEVALUABLE EVENT [None]
  - VASODILATATION [None]
  - VISUAL DISTURBANCE [None]
